FAERS Safety Report 7672279-4 (Version None)
Quarter: 2011Q3

REPORT INFORMATION
  Report Type: 
  Country: None (occurrence: None)
  Receive Date: 20110809
  Receipt Date: 20110803
  Transmission Date: 20111222
  Serious: Yes (Death, Hospitalization)
  Sender: FDA-Public Use
  Company Number: JP-JNJFOC-20090703644

PATIENT
  Sex: Female
  Weight: 58 kg

DRUGS (16)
  1. HEPARIN [Concomitant]
     Indication: PRODUCT USED FOR UNKNOWN INDICATION
     Route: 061
     Dates: start: 20090206
  2. DOXORUBICIN HCL [Suspect]
     Indication: OVARIAN CANCER RECURRENT
     Route: 042
     Dates: start: 20090603, end: 20090603
  3. DEXAMETHASONE [Concomitant]
     Dates: start: 20090603, end: 20090603
  4. WHITE PETROLATUM [Concomitant]
     Indication: PRODUCT USED FOR UNKNOWN INDICATION
     Route: 061
     Dates: start: 20080414
  5. GRANISETRON [Concomitant]
     Indication: VOMITING
     Route: 042
     Dates: start: 20090607, end: 20090609
  6. HEPARIN [Concomitant]
     Route: 061
  7. ALBUMIN TANNATE [Concomitant]
     Route: 048
  8. KETOPROFEN [Concomitant]
     Indication: PRODUCT USED FOR UNKNOWN INDICATION
     Route: 062
     Dates: start: 20080401
  9. PACETCOOL [Concomitant]
     Route: 042
     Dates: start: 20090608, end: 20090610
  10. RADIOTHERAPY [Suspect]
     Indication: PRODUCT USED FOR UNKNOWN INDICATION
     Route: 065
  11. SENNOSIDE [Concomitant]
     Route: 048
  12. MAGMITT [Concomitant]
     Route: 048
     Dates: start: 20070919, end: 20071003
  13. BIFIDOBACTERIUM [Concomitant]
     Route: 048
  14. POTASSIUM CHLORIDE [Concomitant]
     Indication: DEHYDRATION
     Route: 042
     Dates: start: 20090607, end: 20090609
  15. SAXIZON [Concomitant]
     Route: 042
     Dates: start: 20090607, end: 20090609
  16. MAGMITT [Concomitant]
     Route: 048

REACTIONS (6)
  - VOMITING [None]
  - APHAGIA [None]
  - FLUID INTAKE REDUCED [None]
  - INTESTINAL OBSTRUCTION [None]
  - GENERAL PHYSICAL HEALTH DETERIORATION [None]
  - DEHYDRATION [None]
